FAERS Safety Report 6412211-4 (Version None)
Quarter: 2009Q4

REPORT INFORMATION
  Report Type: 
  Country: None (occurrence: None)
  Receive Date: 20091023
  Receipt Date: 20091016
  Transmission Date: 20100525
  Serious: Yes (Hospitalization)
  Sender: FDA-Public Use
  Company Number: B0594207A

PATIENT
  Sex: Male
  Weight: 51 kg

DRUGS (7)
  1. VALTREX [Suspect]
     Indication: HERPES ZOSTER OTICUS
     Dosage: 1000MG THREE TIMES PER DAY
     Route: 048
     Dates: start: 20090913, end: 20090917
  2. PRERAN [Concomitant]
     Indication: HYPERTENSION
     Dosage: 1MG PER DAY
     Route: 048
  3. TENORMIN [Concomitant]
     Indication: HYPERTENSION
     Dosage: 25MG PER DAY
     Route: 048
  4. ADALAT CC [Concomitant]
     Indication: HYPERTENSION
     Dosage: 40MG PER DAY
     Route: 048
  5. AMARYL [Concomitant]
     Indication: DIABETES MELLITUS
     Dosage: 2MG PER DAY
     Route: 048
  6. CARDENALIN [Concomitant]
     Indication: DIABETES MELLITUS
     Dosage: 2MG PER DAY
     Route: 048
  7. DEPAS [Concomitant]
     Indication: INSOMNIA
     Dosage: 1MG PER DAY
     Route: 048

REACTIONS (5)
  - DYSURIA [None]
  - MALAISE [None]
  - NEUROGENIC BLADDER [None]
  - RENAL FAILURE ACUTE [None]
  - URETHRAL STENOSIS [None]
